FAERS Safety Report 7086608-6 (Version None)
Quarter: 2010Q4

REPORT INFORMATION
  Report Type: 
  Country: None (occurrence: None)
  Receive Date: 20101105
  Receipt Date: 20101012
  Transmission Date: 20110411
  Serious: No
  Sender: FDA-Public Use
  Company Number: US-TYCO HEALTHCARE/MALLINCKRODT-T201002142

PATIENT
  Sex: Male

DRUGS (1)
  1. PENNSAID [Suspect]
     Dosage: UNK

REACTIONS (2)
  - ACCIDENTAL EXPOSURE [None]
  - VOMITING [None]
